FAERS Safety Report 19502216 (Version 1)
Quarter: 2021Q3

REPORT INFORMATION
  Report Type: Spontaneous
  Country: US (occurrence: US)
  Receive Date: 20210707
  Receipt Date: 20210707
  Transmission Date: 20211014
  Serious: No
  Sender: FDA-Public Use
  Company Number: US-BAYER-2021-170975

PATIENT
  Age: 55 Year
  Sex: Male

DRUGS (2)
  1. GADAVIST [Suspect]
     Active Substance: GADOBUTROL
     Indication: MAGNETIC RESONANCE IMAGING HEAD
     Dosage: 9ML,ONCE
     Route: 042
     Dates: start: 20210628, end: 20210628
  2. GADAVIST [Suspect]
     Active Substance: GADOBUTROL
     Indication: BRAIN NEOPLASM

REACTIONS (2)
  - Dyspnoea [Recovered/Resolved]
  - Cough [Recovered/Resolved]

NARRATIVE: CASE EVENT DATE: 20210628
